FAERS Safety Report 24579216 (Version 1)
Quarter: 2024Q4

REPORT INFORMATION
  Report Type: Spontaneous
  Country: US (occurrence: US)
  Receive Date: 20241105
  Receipt Date: 20241105
  Transmission Date: 20250114
  Serious: No
  Sender: TEVA
  Company Number: US-TEVA-VS-3254965

PATIENT
  Age: 47 Year
  Sex: Female

DRUGS (1)
  1. TRAZODONE HYDROCHLORIDE [Suspect]
     Active Substance: TRAZODONE HYDROCHLORIDE
     Indication: Insomnia
     Dosage: ^UP TO 3 QUARTERS^
     Route: 065

REACTIONS (2)
  - Hypermetropia [Unknown]
  - Product use in unapproved indication [Unknown]
